FAERS Safety Report 17397196 (Version 5)
Quarter: 2020Q1

REPORT INFORMATION
  Report Type: Spontaneous
  Country: US (occurrence: US)
  Receive Date: 20200210
  Receipt Date: 20200303
  Transmission Date: 20200409
  Serious: Yes (Other)
  Sender: FDA-Public Use
  Company Number: US-PFIZER INC-2020056996

PATIENT
  Age: 71 Year
  Sex: Male

DRUGS (3)
  1. VYNDAQEL [Suspect]
     Active Substance: TAFAMIDIS MEGLUMINE
     Indication: CARDIAC AMYLOIDOSIS
     Dosage: 80 MG, UNK
     Dates: start: 201911
  2. FUROSEMIDE. [Suspect]
     Active Substance: FUROSEMIDE
     Dosage: 20 MG, 2X/DAY
  3. ELIQUIS [Suspect]
     Active Substance: APIXABAN
     Indication: CEREBROVASCULAR ACCIDENT PROPHYLAXIS
     Dosage: UNK
     Route: 065

REACTIONS (14)
  - Middle insomnia [Unknown]
  - Asthenia [Unknown]
  - Headache [Unknown]
  - Haemorrhagic diathesis [Unknown]
  - Respiratory tract congestion [Unknown]
  - Dyspnoea [Unknown]
  - Chest pain [Unknown]
  - Increased tendency to bruise [Unknown]
  - Sleep disorder [Unknown]
  - Lethargy [Unknown]
  - Chest discomfort [Unknown]
  - Peripheral swelling [Unknown]
  - Dizziness [Unknown]
  - Choking sensation [Unknown]
